FAERS Safety Report 6578741-X (Version None)
Quarter: 2010Q1

REPORT INFORMATION
  Report Type: 
  Country: None (occurrence: None)
  Receive Date: 20100202
  Receipt Date: 20100119
  Transmission Date: 20100710
  Serious: Yes (Death)
  Sender: FDA-Public Use
  Company Number: 008588

PATIENT
  Sex: Male

DRUGS (1)
  1. SAMSCA [Suspect]
     Dosage: 15 MG, ORAL
     Route: 048

REACTIONS (1)
  - NEOPLASM MALIGNANT [None]
